FAERS Safety Report 9814714 (Version 1)
Quarter: 2014Q1

REPORT INFORMATION
  Report Type: Spontaneous
  Country: US (occurrence: US)
  Receive Date: 20140113
  Receipt Date: 20140113
  Transmission Date: 20141002
  Serious: No
  Sender: FDA-Public Use
  Company Number: US-SANOFI-AVENTIS-2013SA016918

PATIENT
  Sex: 0

DRUGS (2)
  1. TAXOTERE [Suspect]
  2. PACLITAXEL [Interacting]

REACTIONS (1)
  - Drug interaction [Unknown]
